FAERS Safety Report 6924815-0 (Version None)
Quarter: 2010Q3

REPORT INFORMATION
  Report Type: 
  Country: None (occurrence: None)
  Receive Date: 20100816
  Receipt Date: 20100806
  Transmission Date: 20110219
  Serious: Yes (Other)
  Sender: FDA-Public Use
  Company Number: FR-TYCO HEALTHCARE/MALLINCKRODT-T201001586

PATIENT
  Sex: Female

DRUGS (1)
  1. OPTIRAY 350 [Suspect]
     Indication: COMPUTERISED TOMOGRAM
     Dosage: 90 ML, SINGLE
     Route: 042
     Dates: start: 20100708, end: 20100708

REACTIONS (5)
  - ANGIOEDEMA [None]
  - ERYTHEMA [None]
  - LARYNGEAL OEDEMA [None]
  - PRURITUS [None]
  - RASH PAPULAR [None]
